FAERS Safety Report 23924609 (Version 1)
Quarter: 2024Q2

REPORT INFORMATION
  Report Type: Report from Study
  Country: US (occurrence: US)
  Receive Date: 20240531
  Receipt Date: 20240531
  Transmission Date: 20240716
  Serious: Yes (Other)
  Sender: FDA-Public Use
  Company Number: US-INSMED, INC.-2024-01753-US

PATIENT
  Sex: Female

DRUGS (1)
  1. ARIKAYCE [Suspect]
     Active Substance: AMIKACIN
     Indication: Mycobacterium avium complex infection
     Dosage: 590 MILLIGRAM, QD
     Route: 055
     Dates: start: 20240424

REACTIONS (8)
  - Oxygen therapy [Not Recovered/Not Resolved]
  - Secretion discharge [Unknown]
  - Sputum increased [Not Recovered/Not Resolved]
  - Cough [Recovered/Resolved]
  - Cough [Recovering/Resolving]
  - Throat irritation [Recovered/Resolved]
  - Device issue [Unknown]
  - Wrong technique in device usage process [Unknown]

NARRATIVE: CASE EVENT DATE: 20240101
